FAERS Safety Report 15578871 (Version 2)
Quarter: 2018Q4

REPORT INFORMATION
  Report Type: Spontaneous
  Country: FR (occurrence: FR)
  Receive Date: 20181102
  Receipt Date: 20181127
  Transmission Date: 20190205
  Serious: Yes (Hospitalization, Other)
  Sender: FDA-Public Use
  Company Number: FR-SEPTODONT-201804854

PATIENT
  Age: 42 Year
  Sex: Female

DRUGS (1)
  1. SEPTANEST 1/100,000 [Suspect]
     Active Substance: ARTICAINE HYDROCHLORIDE\EPINEPHRINE HYDROCHLORIDE
     Indication: DENTAL LOCAL ANAESTHESIA
     Route: 004
     Dates: start: 20181016

REACTIONS (4)
  - Vomiting [Recovered/Resolved]
  - Tooth abscess [Recovered/Resolved]
  - Vertigo [Recovered/Resolved]
  - Swelling [Recovered/Resolved]

NARRATIVE: CASE EVENT DATE: 20181016
